FAERS Safety Report 8906590 (Version 1)
Quarter: 2012Q4

REPORT INFORMATION
  Report Type: 
  Country: US (occurrence: US)
  Receive Date: 20121114
  Receipt Date: 20121114
  Transmission Date: 20130627
  Serious: No
  Sender: FDA-Public Use
  Company Number: US-ASTRAZENECA-2012SE83826

PATIENT
  Age: 65 Year
  Sex: Female

DRUGS (8)
  1. NEXIUM [Suspect]
     Route: 048
  2. CRESTOR [Suspect]
     Route: 048
  3. MECLIZINE [Concomitant]
     Indication: VERTIGO
  4. EXFORGE [Concomitant]
     Indication: BLOOD PRESSURE ABNORMAL
  5. SPIRONOLACTONE [Concomitant]
     Indication: BLOOD PRESSURE ABNORMAL
  6. ZOSTAVAX [Concomitant]
     Indication: HERPES ZOSTER
  7. HYDRALAZINE [Concomitant]
     Indication: BLOOD PRESSURE ABNORMAL
  8. METOPROLOL TARTRATE [Concomitant]

REACTIONS (3)
  - Muscle spasms [Unknown]
  - Vertigo [Unknown]
  - Blood pressure abnormal [Unknown]
